FAERS Safety Report 8011552-7 (Version None)
Quarter: 2011Q4

REPORT INFORMATION
  Report Type: 
  Country: None (occurrence: None)
  Receive Date: 20111228
  Receipt Date: 20111221
  Transmission Date: 20120403
  Serious: Yes (Other)
  Sender: FDA-Public Use
  Company Number: US-PFIZER INC-2011281670

PATIENT
  Sex: Female
  Weight: 55.782 kg

DRUGS (1)
  1. CELEBREX [Suspect]
     Dosage: UNK
     Dates: start: 19960101

REACTIONS (3)
  - ANKLE FRACTURE [None]
  - FALL [None]
  - HIP FRACTURE [None]
